FAERS Safety Report 14559214 (Version 1)
Quarter: 2018Q1

REPORT INFORMATION
  Report Type: Spontaneous
  Country: US (occurrence: US)
  Receive Date: 20180221
  Receipt Date: 20180221
  Transmission Date: 20180509
  Serious: Yes (Hospitalization, Disabling)
  Sender: FDA-Public Use
  Company Number: None

PATIENT
  Age: 42 Year
  Sex: Female
  Weight: 63.5 kg

DRUGS (7)
  1. BENZOTROPINE [Suspect]
     Active Substance: BENZTROPINE
     Dosage: 1 INJECTION 2 WEEKS EVERY 2 WEEKS INJECTION
  2. COFFEE [Concomitant]
     Active Substance: ARABICA COFFEE BEAN\COFFEE BEAN
  3. TEA [Concomitant]
     Active Substance: TEA LEAF
  4. VITAMIN E [Concomitant]
     Active Substance: .ALPHA.-TOCOPHEROL
  5. RISPERDAL CONSTA [Suspect]
     Active Substance: RISPERIDONE
     Indication: PRODUCT USED FOR UNKNOWN INDICATION
     Dosage: 1 PILL TWICE A DAY 2X A DAY MOUTH
     Route: 048
  6. BIZ [Concomitant]
  7. DAILY VITAMIN FOR WOMEN [Concomitant]

REACTIONS (11)
  - Visual impairment [None]
  - Anger [None]
  - Amenorrhoea [None]
  - Hepatic failure [None]
  - Victim of crime [None]
  - Memory impairment [None]
  - Chest pain [None]
  - Liver injury [None]
  - Alopecia [None]
  - Weight increased [None]
  - Neoplasm skin [None]
